FAERS Safety Report 18062093 (Version 1)
Quarter: 2020Q3

REPORT INFORMATION
  Report Type: Spontaneous
  Country: MX (occurrence: MX)
  Receive Date: 20200723
  Receipt Date: 20200723
  Transmission Date: 20201103
  Serious: Yes (Hospitalization, Other)
  Sender: FDA-Public Use
  Company Number: MX-ASTRAZENECA-2020SE91283

PATIENT
  Age: 63 Year
  Sex: Female
  Weight: 74 kg

DRUGS (7)
  1. LYNPARZA [Suspect]
     Active Substance: OLAPARIB
     Dosage: 150 MG, 2 EVERY 12 HOURS ON 12?MAY?2020
     Route: 048
     Dates: start: 20200512
  2. LYNPARZA [Suspect]
     Active Substance: OLAPARIB
     Dosage: 50 MG 4 IN THE MORNING AND 4 IN THE EVENING
     Route: 048
     Dates: start: 20200706
  3. ONDANSETRON [Concomitant]
     Active Substance: ONDANSETRON
  4. INSULIN GLARGINE [Concomitant]
     Active Substance: INSULIN GLARGINE
     Indication: TYPE 2 DIABETES MELLITUS
     Dosage: 10 UNITS EVERY 24 HOURS
  5. DEXAMETHASONE. [Concomitant]
     Active Substance: DEXAMETHASONE
  6. DEXLANSOPRAZOLE [Concomitant]
     Active Substance: DEXLANSOPRAZOLE
  7. BUPRENORPHINE. [Concomitant]
     Active Substance: BUPRENORPHINE

REACTIONS (10)
  - Fatigue [Unknown]
  - Acute kidney injury [Recovered/Resolved]
  - Neutropenia [Recovered/Resolved]
  - Thrombocytopenia [Unknown]
  - Anaemia [Unknown]
  - Vomiting [Recovered/Resolved]
  - Polyneuropathy [Unknown]
  - Nausea [Recovered/Resolved]
  - Leukopenia [Unknown]
  - Product dispensing error [Unknown]

NARRATIVE: CASE EVENT DATE: 20200528
